FAERS Safety Report 8983261 (Version 2)
Quarter: 2013Q2

REPORT INFORMATION
  Report Type: Report from Study
  Country: AU (occurrence: AU)
  Receive Date: 20121224
  Receipt Date: 20130402
  Transmission Date: 20140414
  Serious: Yes (Hospitalization)
  Sender: FDA-Public Use
  Company Number: PHHY2012AU102409

PATIENT
  Age: 68 Year
  Sex: Male

DRUGS (8)
  1. EXJADE [Suspect]
     Indication: CHRONIC LEUKAEMIA
     Dosage: 1 DF, DAILY FOR ONE WEEK
     Route: 048
  2. EXJADE [Suspect]
     Dosage: 2 DF, DAILY FOR ONE WEEK
     Route: 048
  3. EXJADE [Suspect]
     Dosage: 3 DF, DAILY FOR 2 WEEKS
     Route: 048
  4. EXJADE [Suspect]
     Dosage: 1500 MG/DAY
     Route: 048
     Dates: start: 20121001
  5. VALPRO [Concomitant]
  6. SEROQUEL [Concomitant]
  7. RAMIPRIL [Concomitant]
  8. BACTRIM [Concomitant]

REACTIONS (4)
  - Muscle spasms [Recovered/Resolved]
  - Serum ferritin increased [Unknown]
  - Blood iron increased [Unknown]
  - Drug ineffective [Unknown]
